FAERS Safety Report 5701960-9 (Version None)
Quarter: 2008Q2

REPORT INFORMATION
  Report Type: 
  Country: None (occurrence: None)
  Receive Date: 20080411
  Receipt Date: 20070312
  Transmission Date: 20081010
  Serious: No
  Sender: FDA-Public Use
  Company Number: US-ABBOTT-07P-163-0361515-00

PATIENT
  Sex: Female

DRUGS (2)
  1. DIVALPROEX SODIUM [Suspect]
     Indication: DRUG USE FOR UNKNOWN INDICATION
     Route: 048
  2. DIVALPROEX SODIUM [Suspect]
     Route: 048

REACTIONS (3)
  - CONFUSIONAL STATE [None]
  - HYPERAMMONAEMIA [None]
  - SEDATION [None]
